FAERS Safety Report 25723726 (Version 1)
Quarter: 2025Q3

REPORT INFORMATION
  Report Type: Report from Study
  Country: EU (occurrence: EU)
  Receive Date: 20250825
  Receipt Date: 20250825
  Transmission Date: 20251021
  Serious: Yes (Other)
  Sender: VERITY PHARMACEUTICALS INC.
  Company Number: EU-VER-202500011

PATIENT
  Sex: Female

DRUGS (1)
  1. TRIPTORELIN [Suspect]
     Active Substance: TRIPTORELIN
     Indication: Product used for unknown indication
     Route: 065

REACTIONS (10)
  - Stillbirth [Unknown]
  - Cholestasis [Unknown]
  - Diabetes mellitus [Unknown]
  - Foetal growth restriction [Unknown]
  - Abortion spontaneous [Unknown]
  - Placenta praevia [Unknown]
  - Placental disorder [Unknown]
  - Premature rupture of membranes [Unknown]
  - Twin pregnancy [Unknown]
  - Uterine atony [Unknown]
